FAERS Safety Report 4516179-7 (Version None)
Quarter: 2004Q4

REPORT INFORMATION
  Report Type: 
  Country: None (occurrence: None)
  Receive Date: 20041202
  Receipt Date: 20041122
  Transmission Date: 20050328
  Serious: Yes (Life-Threatening, Hospitalization, Disabling, Other)
  Sender: FDA-Public Use
  Company Number: GB-BRISTOL-MYERS SQUIBB COMPANY-12772265

PATIENT
  Age: 57 Year
  Sex: Female
  Weight: 87 kg

DRUGS (3)
  1. CARBOPLATIN [Suspect]
     Indication: OVARIAN CANCER
     Dosage: 6 CYCLES: MAY-OCT-01; 6 CYCLES: JUN-NOV-02; 5 CYCLES: JAN-APR-04
     Route: 041
     Dates: start: 20010501, end: 20040401
  2. EPREX [Suspect]
     Route: 058
     Dates: start: 20020909, end: 20021104
  3. TAMOXIFEN CITRATE [Concomitant]
     Indication: OVARIAN CANCER
     Dates: start: 20040501, end: 20041001

REACTIONS (1)
  - REFRACTORY ANAEMIA WITH AN EXCESS OF BLASTS [None]
